FAERS Safety Report 5409308-4 (Version None)
Quarter: 2007Q3

REPORT INFORMATION
  Report Type: 
  Country: None (occurrence: None)
  Receive Date: 20070809
  Receipt Date: 20070803
  Transmission Date: 20080115
  Serious: Yes (Disabling, Other)
  Sender: FDA-Public Use
  Company Number: PHEH2007US10821

PATIENT
  Age: 56 Year
  Sex: Female
  Weight: 43.083 kg

DRUGS (4)
  1. DIOVAN [Suspect]
     Indication: HYPERTENSION
     Dosage: 80 MG, QHS
     Route: 048
     Dates: start: 20070627, end: 20070710
  2. ASPIRIN [Concomitant]
     Dosage: ^5 GR^/ QD
     Route: 048
  3. PREMPRO [Concomitant]
     Dosage: ^1.25, QD^
     Route: 048
  4. IMITREX [Concomitant]
     Dosage: 50 MG, PRN
     Route: 048

REACTIONS (4)
  - HYPOTENSION [None]
  - OPTIC NEURITIS [None]
  - PAPILLOEDEMA [None]
  - VISION BLURRED [None]
